FAERS Safety Report 5035077-6 (Version None)
Quarter: 2006Q2

REPORT INFORMATION
  Report Type: 
  Country: None (occurrence: None)
  Receive Date: 20060519
  Receipt Date: 20060124
  Transmission Date: 20061013
  Serious: No
  Sender: FDA-Public Use
  Company Number: TPA2006A00141

PATIENT
  Age: 40 Year
  Sex: Female
  Weight: 51.2565 kg

DRUGS (2)
  1. ROZEREM [Suspect]
     Indication: INSOMNIA
     Dosage: 8 MG, HS, PER ORAL
     Route: 048
     Dates: start: 20060123
  2. REQUIP [Concomitant]

REACTIONS (3)
  - CONDITION AGGRAVATED [None]
  - PARAESTHESIA [None]
  - RESTLESS LEGS SYNDROME [None]
